FAERS Safety Report 5306866-5 (Version None)
Quarter: 2007Q2

REPORT INFORMATION
  Report Type: 
  Country: None (occurrence: None)
  Receive Date: 20070425
  Receipt Date: 20070420
  Transmission Date: 20071010
  Serious: Yes (Death)
  Sender: FDA-Public Use
  Company Number: US-BAXTER-2007BH003592

PATIENT
  Age: 72 Year
  Sex: Male
  Weight: 65 kg

DRUGS (10)
  1. FENTANYL CITRATE [Suspect]
     Indication: PAIN
     Route: 042
     Dates: start: 20070325, end: 20070325
  2. FENTANYL CITRATE [Suspect]
     Dosage: DOSE UNIT:UNKNOWN
     Route: 042
     Dates: start: 20070326
  3. ALBUTEROL [Concomitant]
     Indication: CHRONIC OBSTRUCTIVE PULMONARY DISEASE
     Dosage: DOSE UNIT:UNKNOWN
     Route: 055
     Dates: start: 20070325
  4. MIDAZOLAM HCL [Concomitant]
     Indication: SEDATION
     Dosage: DOSE UNIT:UNKNOWN
     Route: 042
     Dates: start: 20070325
  5. MOMETASONE FUROATE [Concomitant]
     Indication: CHRONIC OBSTRUCTIVE PULMONARY DISEASE
     Dosage: DOSE UNIT:UNKNOWN
     Route: 045
     Dates: start: 20070325
  6. PIPERACILLIN [Concomitant]
     Dosage: DOSE UNIT:UNKNOWN
     Route: 042
     Dates: start: 20070325
  7. LASIX [Concomitant]
     Indication: HYPERTENSION
     Dosage: DOSE UNIT:UNKNOWN
     Route: 042
     Dates: start: 20070325
  8. SODIUM PHOSPHATES [Concomitant]
     Dosage: DOSE UNIT:UNKNOWN
     Route: 042
     Dates: start: 20070325
  9. LISINOPRIL [Concomitant]
     Indication: DRUG USE FOR UNKNOWN INDICATION
     Route: 048
  10. OXYGEN [Concomitant]
     Indication: CHRONIC OBSTRUCTIVE PULMONARY DISEASE
     Dates: end: 20070329

REACTIONS (3)
  - ACCIDENTAL OVERDOSE [None]
  - BRADYCARDIA [None]
  - DISEASE PROGRESSION [None]
